FAERS Safety Report 8209469-8 (Version None)
Quarter: 2012Q1

REPORT INFORMATION
  Report Type: 
  Country: None (occurrence: None)
  Receive Date: 20120314
  Receipt Date: 20120228
  Transmission Date: 20120608
  Serious: Yes (Other)
  Sender: FDA-Public Use
  Company Number: CHPA2012US004171

PATIENT
  Age: 53 Year
  Sex: Male

DRUGS (2)
  1. INSULIN [Concomitant]
     Indication: DIABETES MELLITUS
     Dosage: UNK, UNK
  2. CONTROL PLP [Suspect]
     Indication: SMOKING CESSATION THERAPY
     Dosage: 21 MG, QD
     Route: 062

REACTIONS (3)
  - ABSCESS [None]
  - THROMBOSIS [None]
  - PAIN [None]
